FAERS Safety Report 5409302-3 (Version None)
Quarter: 2007Q3

REPORT INFORMATION
  Report Type: 
  Country: None (occurrence: None)
  Receive Date: 20070809
  Receipt Date: 20070731
  Transmission Date: 20080115
  Serious: Yes (Hospitalization, Disabling)
  Sender: FDA-Public Use
  Company Number: US-KINGPHARMUSA00001-K200700961

PATIENT

DRUGS (1)
  1. KEMADRIN [Suspect]
     Indication: PARKINSON'S DISEASE
     Dosage: 2.5 MG, TID
     Route: 048
     Dates: start: 20070704, end: 20070707

REACTIONS (2)
  - AMNESIA [None]
  - CONFUSIONAL STATE [None]
